FAERS Safety Report 16055596 (Version 2)
Quarter: 2019Q1

REPORT INFORMATION
  Report Type: Report from Study
  Country: None (occurrence: NL)
  Receive Date: 20190311
  Receipt Date: 20190312
  Transmission Date: 20190418
  Serious: Yes (Death, Life-Threatening)
  Sender: FDA-Public Use
  Company Number: NL-ABBVIE-19S-114-2697316-00

PATIENT
  Sex: Female

DRUGS (2)
  1. DUODOPA [Suspect]
     Active Substance: CARBIDOPA\LEVODOPA
     Indication: PARKINSON^S DISEASE
     Route: 050
     Dates: start: 20131121
  2. MORPHINE [Concomitant]
     Active Substance: MORPHINE
     Indication: DECUBITUS ULCER

REACTIONS (3)
  - Death [Fatal]
  - Terminal state [Not Recovered/Not Resolved]
  - Decubitus ulcer [Unknown]

NARRATIVE: CASE EVENT DATE: 2019
